FAERS Safety Report 16317874 (Version 1)
Quarter: 2019Q2

REPORT INFORMATION
  Report Type: Report from Study
  Country: GB (occurrence: GB)
  Receive Date: 20190516
  Receipt Date: 20190516
  Transmission Date: 20190711
  Serious: Yes (Other)
  Sender: FDA-Public Use
  Company Number: GB-TEVA-2019-GB-1050218

PATIENT
  Sex: Female

DRUGS (1)
  1. COPAXONE [Suspect]
     Active Substance: GLATIRAMER ACETATE
     Indication: MULTIPLE SCLEROSIS
     Dosage: PRE-FILLED SYRINGE, THREE TIMES A WEEK
     Route: 058
     Dates: start: 20090318

REACTIONS (7)
  - Consciousness fluctuating [Unknown]
  - Malaise [Unknown]
  - Eye movement disorder [Unknown]
  - Generalised erythema [Unknown]
  - Loss of consciousness [Unknown]
  - Dyspnoea [Unknown]
  - Hyperhidrosis [Unknown]
